FAERS Safety Report 13981211 (Version 1)
Quarter: 2017Q3

REPORT INFORMATION
  Report Type: Spontaneous
  Country: US (occurrence: US)
  Receive Date: 20170915
  Receipt Date: 20170915
  Transmission Date: 20171128
  Serious: Yes (Other)
  Sender: FDA-Public Use
  Company Number: None

PATIENT
  Age: 64 Year
  Sex: Male
  Weight: 67.95 kg

DRUGS (13)
  1. PROAIR HFA [Concomitant]
     Active Substance: ALBUTEROL SULFATE
  2. MULTI VITAMIN [Concomitant]
     Active Substance: VITAMINS
  3. LESOMEPRAZOLE [Concomitant]
  4. VARUBI [Concomitant]
     Active Substance: ROLAPITANT
  5. CAPECITABINE. [Suspect]
     Active Substance: CAPECITABINE
     Indication: OESOPHAGEAL NEOPLASM
     Route: 048
     Dates: start: 20170810, end: 20170915
  6. GLIPIZIDE. [Concomitant]
     Active Substance: GLIPIZIDE
  7. ONDANSETRON [Concomitant]
     Active Substance: ONDANSETRON
  8. PAROXETINE. [Concomitant]
     Active Substance: PAROXETINE
  9. RANITIDINE. [Concomitant]
     Active Substance: RANITIDINE
  10. DICLOFENAC [Concomitant]
     Active Substance: DICLOFENAC
  11. OMPERAZOLE [Concomitant]
     Active Substance: OMEPRAZOLE
  12. SIMVASTATIN. [Concomitant]
     Active Substance: SIMVASTATIN
  13. TAMSULOSIN [Concomitant]
     Active Substance: TAMSULOSIN

REACTIONS (3)
  - Toxicity to various agents [None]
  - Palmar-plantar erythrodysaesthesia syndrome [None]
  - Platelet count decreased [None]

NARRATIVE: CASE EVENT DATE: 20170915
